FAERS Safety Report 14314798 (Version 1)
Quarter: 2017Q4

REPORT INFORMATION
  Report Type: Spontaneous
  Country: GB (occurrence: GB)
  Receive Date: 20171221
  Receipt Date: 20171221
  Transmission Date: 20180321
  Serious: Yes (Other)
  Sender: FDA-Public Use
  Company Number: GB-TEVA-2017-GB-835355

PATIENT
  Age: 76 Year
  Sex: Male
  Weight: 87 kg

DRUGS (10)
  1. LATANOPROST. [Concomitant]
     Active Substance: LATANOPROST
     Dosage: 1 GTT DAILY; AT NIGHT TO BOTH EYES.
     Route: 050
     Dates: start: 20150420
  2. CARBAMAZEPINE. [Concomitant]
     Active Substance: CARBAMAZEPINE
     Dosage: TAKE ONE ONCE OR TWICE A DAY. CAN INCREA...
     Dates: start: 20150420
  3. ACETYLSALICYLIC ACID [Concomitant]
     Active Substance: ASPIRIN
     Dosage: 1 DOSAGE FORMS DAILY;
     Dates: start: 20150420
  4. QUETIAPINE. [Concomitant]
     Active Substance: QUETIAPINE
     Dosage: 4 DOSAGE FORMS DAILY; 1 MORNING, 1 TEATIME AND 2 AT NIGHT.
     Dates: start: 20150420
  5. SIMVASTATIN. [Concomitant]
     Active Substance: SIMVASTATIN
     Dosage: 1 DOSAGE FORMS DAILY; AT NIGHT.
     Dates: start: 20150420
  6. RAMIPRIL. [Concomitant]
     Active Substance: RAMIPRIL
     Dosage: 1 DOSAGE FORMS DAILY;
     Dates: start: 20150420
  7. ISOTARD XL [Concomitant]
     Dosage: 1 DOSAGE FORMS DAILY; EACH MORNING.
     Dates: start: 20160219
  8. LOFEPRAMINE [Concomitant]
     Active Substance: LOFEPRAMINE
     Dosage: 3 DOSAGE FORMS DAILY; 1 IN THE MORNING AND 2 IN THE AF...
     Dates: start: 20150420
  9. METFORMIN [Suspect]
     Active Substance: METFORMIN HYDROCHLORIDE
     Dates: start: 20170720
  10. ADALAT [Concomitant]
     Active Substance: NIFEDIPINE
     Dosage: 2 DOSAGE FORMS DAILY;
     Dates: start: 20160114

REACTIONS (1)
  - Depression [Recovered/Resolved]

NARRATIVE: CASE EVENT DATE: 20171109
